FAERS Safety Report 7037997-X (Version None)
Quarter: 2010Q4

REPORT INFORMATION
  Report Type: 
  Country: None (occurrence: None)
  Receive Date: 20101011
  Receipt Date: 20100930
  Transmission Date: 20110411
  Serious: Yes (Hospitalization)
  Sender: FDA-Public Use
  Company Number: BR-ASTRAZENECA-2010SE46482

PATIENT
  Age: 28 Year
  Sex: Male

DRUGS (9)
  1. SEROQUEL [Suspect]
     Indication: ANXIETY DISORDER
     Route: 048
     Dates: start: 20100101
  2. SEROQUEL [Suspect]
     Route: 048
     Dates: start: 20100501, end: 20100501
  3. SEROQUEL [Suspect]
     Route: 048
     Dates: start: 20100601, end: 20100601
  4. SEROQUEL [Suspect]
     Route: 048
     Dates: start: 20100601, end: 20100601
  5. SEROQUEL [Suspect]
     Route: 048
     Dates: start: 20100701, end: 20100701
  6. SEROQUEL [Suspect]
     Route: 048
     Dates: start: 20100801, end: 20100801
  7. SEROQUEL [Suspect]
     Route: 048
     Dates: start: 20100901, end: 20100901
  8. SEROQUEL [Suspect]
     Route: 048
     Dates: start: 20100901
  9. FLUOXETINE [Concomitant]
     Route: 048

REACTIONS (3)
  - ANXIETY [None]
  - CONVULSION [None]
  - FACIAL BONES FRACTURE [None]
